FAERS Safety Report 11803996 (Version 1)
Quarter: 2015Q4

REPORT INFORMATION
  Report Type: Spontaneous
  Country: US (occurrence: US)
  Receive Date: 20151204
  Receipt Date: 20151204
  Transmission Date: 20160305
  Serious: No
  Sender: FDA-Public Use
  Company Number: US-ASTRAZENECA-2013SE42686

PATIENT
  Age: 859 Month
  Sex: Female
  Weight: 84.8 kg

DRUGS (5)
  1. GLIPIZIDE. [Suspect]
     Active Substance: GLIPIZIDE
     Route: 065
  2. BYDUREON [Suspect]
     Active Substance: EXENATIDE
     Indication: TYPE 2 DIABETES MELLITUS
     Dosage: 2 MG, QWK
     Route: 058
  3. NOVOLOG [Suspect]
     Active Substance: INSULIN ASPART
     Route: 065
  4. INSULIN [Suspect]
     Active Substance: INSULIN NOS
     Route: 065
  5. METFORMIN HYDROCHLORIDE. [Suspect]
     Active Substance: METFORMIN HYDROCHLORIDE
     Dosage: NON AZ DRUG
     Route: 065

REACTIONS (9)
  - Injection site swelling [Recovering/Resolving]
  - Underdose [Recovered/Resolved with Sequelae]
  - Needle issue [Unknown]
  - Hypokinesia [Recovered/Resolved]
  - Vaginal haemorrhage [Unknown]
  - Blood glucose increased [Recovering/Resolving]
  - Intentional product misuse [Recovered/Resolved with Sequelae]
  - Injection site extravasation [Recovered/Resolved with Sequelae]
  - Injection site mass [Not Recovered/Not Resolved]

NARRATIVE: CASE EVENT DATE: 201208
